FAERS Safety Report 11327937 (Version 1)
Quarter: 2015Q3

REPORT INFORMATION
  Report Type: Spontaneous
  Country: US (occurrence: US)
  Receive Date: 20150731
  Receipt Date: 20150731
  Transmission Date: 20151125
  Serious: No
  Sender: FDA-Public Use
  Company Number: US-GE HEALTHCARE MEDICAL DIAGNOSTICS-MYVW-PR-1506S-0045

PATIENT
  Age: 54 Year
  Sex: Female

DRUGS (4)
  1. MYOVIEW [Suspect]
     Active Substance: TECHNETIUM TC-99M TETROFOSMIN\TETROFOSMIN
     Indication: CARDIAC STRESS TEST
  2. MYOVIEW [Suspect]
     Active Substance: TECHNETIUM TC-99M TETROFOSMIN\TETROFOSMIN
     Indication: DIAGNOSTIC PROCEDURE
  3. TECHNETIUM 99M GENERATOR [Concomitant]
  4. MYOVIEW [Suspect]
     Active Substance: TECHNETIUM TC-99M TETROFOSMIN\TETROFOSMIN
     Indication: CORONARY ARTERY DISEASE
     Route: 042
     Dates: start: 20150610, end: 20150610

REACTIONS (1)
  - Pruritus [Recovered/Resolved]

NARRATIVE: CASE EVENT DATE: 20150610
